FAERS Safety Report 19582072 (Version 1)
Quarter: 2021Q3

REPORT INFORMATION
  Report Type: Spontaneous
  Country: US (occurrence: US)
  Receive Date: 20210720
  Receipt Date: 20210720
  Transmission Date: 20211014
  Serious: Yes (Hospitalization)
  Sender: FDA-Public Use
  Company Number: None

PATIENT
  Age: 62 Year
  Sex: Male
  Weight: 74.4 kg

DRUGS (5)
  1. CEFPODOXIME [Concomitant]
     Active Substance: CEFPODOXIME
  2. DEXAMETHASONE. [Concomitant]
     Active Substance: DEXAMETHASONE
  3. ALLOPURINOL. [Concomitant]
     Active Substance: ALLOPURINOL
  4. INQOVI [Suspect]
     Active Substance: CEDAZURIDINE\DECITABINE
     Indication: CHRONIC MYELOMONOCYTIC LEUKAEMIA
     Dates: start: 20210622, end: 20210627
  5. HYDROXYUREA. [Concomitant]
     Active Substance: HYDROXYUREA

REACTIONS (1)
  - Staphylococcal sepsis [None]

NARRATIVE: CASE EVENT DATE: 20210630
